FAERS Safety Report 4313935-5 (Version None)
Quarter: 2004Q1

REPORT INFORMATION
  Report Type: 
  Country: None (occurrence: None)
  Receive Date: 20040305
  Receipt Date: 20040226
  Transmission Date: 20041129
  Serious: Yes (Death, Life-Threatening, Hospitalization, Disabling)
  Sender: FDA-Public Use
  Company Number: 2004AP00325

PATIENT
  Age: 63 Year
  Sex: Female
  Weight: 90 kg

DRUGS (8)
  1. IRESSA [Suspect]
     Indication: NON-SMALL CELL LUNG CANCER
     Dosage: 250 MG DAILY; PO
     Route: 048
     Dates: start: 20031224, end: 20040222
  2. VIOXX [Concomitant]
  3. MOVICOL [Concomitant]
  4. MORPHINE SULFATE [Concomitant]
  5. MORPHINE [Concomitant]
  6. DAFALGAN [Concomitant]
  7. ZOMETA [Concomitant]
  8. FRAXIPARINE [Concomitant]

REACTIONS (6)
  - APHASIA [None]
  - CEREBRAL HAEMORRHAGE [None]
  - CEREBRAL ISCHAEMIA [None]
  - CEREBROVASCULAR ACCIDENT [None]
  - FACIAL PARESIS [None]
  - PNEUMONIA ASPIRATION [None]
